FAERS Safety Report 9114375 (Version 1)
Quarter: 2013Q1

REPORT INFORMATION
  Report Type: Spontaneous
  Country: US (occurrence: US)
  Receive Date: 20130208
  Receipt Date: 20130208
  Transmission Date: 20140127
  Serious: Yes (Other)
  Sender: FDA-Public Use
  Company Number: CHPA2013US002037

PATIENT
  Age: 78 Year
  Sex: Female

DRUGS (1)
  1. MAALOX ANTACID/ANTIGAS MAX LIQ [Suspect]
     Indication: GASTROOESOPHAGEAL REFLUX DISEASE
     Dosage: 3 TSP, QHS
     Route: 048

REACTIONS (7)
  - Gastrooesophageal reflux disease [Unknown]
  - Gastrointestinal disorder [Unknown]
  - Osteoporosis [Unknown]
  - Therapeutic response unexpected [Unknown]
  - Off label use [Unknown]
  - Expired drug administered [Unknown]
  - Incorrect dose administered [Unknown]
